APPROVED DRUG PRODUCT: SELEGILINE HYDROCHLORIDE
Active Ingredient: SELEGILINE HYDROCHLORIDE
Strength: 5MG
Dosage Form/Route: CAPSULE;ORAL
Application: A206803 | Product #001 | TE Code: AB
Applicant: RISING PHARMA HOLDINGS INC
Approved: Apr 2, 2019 | RLD: No | RS: No | Type: RX